FAERS Safety Report 8823001 (Version 2)
Quarter: 2015Q3

REPORT INFORMATION
  Report Type: Report from Study
  Country: US (occurrence: US)
  Receive Date: 20121003
  Receipt Date: 20150807
  Transmission Date: 20151125
  Serious: Yes (Death)
  Sender: FDA-Public Use
  Company Number: US-ROCHE-1131614

PATIENT
  Sex: Male

DRUGS (31)
  1. RITUXAN [Suspect]
     Active Substance: RITUXIMAB
     Route: 042
  2. SOLU-MEDROL [Concomitant]
     Active Substance: METHYLPREDNISOLONE SODIUM SUCCINATE
     Route: 042
  3. IFOSFAMIDE. [Concomitant]
     Active Substance: IFOSFAMIDE
  4. PREDNISONE. [Concomitant]
     Active Substance: PREDNISONE
  5. TYLENOL [Concomitant]
     Active Substance: ACETAMINOPHEN
     Route: 048
  6. MESNA. [Concomitant]
     Active Substance: MESNA
     Route: 042
  7. MESNA. [Concomitant]
     Active Substance: MESNA
     Route: 042
  8. IFEX [Concomitant]
     Active Substance: IFOSFAMIDE
     Route: 065
  9. ALLOPURINOL. [Concomitant]
     Active Substance: ALLOPURINOL
     Route: 048
  10. ETOPOSIDE. [Concomitant]
     Active Substance: ETOPOSIDE
     Route: 065
  11. POTASSIUM CHLORIDE. [Concomitant]
     Active Substance: POTASSIUM CHLORIDE
     Route: 065
  12. SOLU-CORTEF [Concomitant]
     Active Substance: HYDROCORTISONE SODIUM SUCCINATE
     Route: 042
  13. DECADRON [Concomitant]
     Active Substance: DEXAMETHASONE
     Route: 042
  14. CISPLATIN. [Concomitant]
     Active Substance: CISPLATIN
     Route: 065
  15. RITUXAN [Suspect]
     Active Substance: RITUXIMAB
     Indication: NON-HODGKIN^S LYMPHOMA
     Route: 042
     Dates: start: 20001121
  16. RITUXAN [Suspect]
     Active Substance: RITUXIMAB
     Route: 042
  17. ALLOPURINOL. [Concomitant]
     Active Substance: ALLOPURINOL
     Route: 048
  18. BENADRYL [Concomitant]
     Active Substance: DIPHENHYDRAMINE HYDROCHLORIDE
     Route: 048
  19. RITUXAN [Suspect]
     Active Substance: RITUXIMAB
     Route: 042
  20. ETOPOSIDE. [Concomitant]
     Active Substance: ETOPOSIDE
     Route: 065
  21. LASIX [Concomitant]
     Active Substance: FUROSEMIDE
     Route: 033
  22. NEUPOGEN [Concomitant]
     Active Substance: FILGRASTIM
     Route: 065
  23. RITUXAN [Suspect]
     Active Substance: RITUXIMAB
     Route: 042
  24. ANZEMET [Concomitant]
     Active Substance: DOLASETRON MESYLATE
     Route: 065
  25. LASIX [Concomitant]
     Active Substance: FUROSEMIDE
     Route: 065
  26. LEVAQUIN [Concomitant]
     Active Substance: LEVOFLOXACIN
     Route: 065
  27. CYTARABINE. [Concomitant]
     Active Substance: CYTARABINE
  28. CYTOXAN [Concomitant]
     Active Substance: CYCLOPHOSPHAMIDE
  29. RITUXAN [Suspect]
     Active Substance: RITUXIMAB
     Route: 042
  30. COMPAZINE [Concomitant]
     Active Substance: PROCHLORPERAZINE MALEATE
     Route: 065
  31. VINCRISTINE [Concomitant]
     Active Substance: VINCRISTINE

REACTIONS (14)
  - Weight decreased [Unknown]
  - Cytopenia [Unknown]
  - Cough [Unknown]
  - Abdominal discomfort [Unknown]
  - Fatigue [Unknown]
  - Dyspnoea [Unknown]
  - Renal impairment [Unknown]
  - Pleural effusion [Unknown]
  - Abscess [Unknown]
  - Neuropathy peripheral [Unknown]
  - Splenomegaly [Unknown]
  - Pyrexia [Unknown]
  - Death [Fatal]
  - Lymphadenopathy [Unknown]
